FAERS Safety Report 25552199 (Version 2)
Quarter: 2025Q3

REPORT INFORMATION
  Report Type: Report from Study
  Country: US (occurrence: US)
  Receive Date: 20250715
  Receipt Date: 20250806
  Transmission Date: 20251021
  Serious: Yes (Other)
  Sender: ALEXION PHARMACEUTICALS
  Company Number: US-AstraZeneca-CH-00909173A

PATIENT

DRUGS (1)
  1. ULTOMIRIS [Suspect]
     Active Substance: RAVULIZUMAB-CWVZ
     Indication: Myasthenia gravis
     Route: 065

REACTIONS (8)
  - Headache [Unknown]
  - Asthenia [Unknown]
  - Dyspnoea [Unknown]
  - Sleep disorder [Unknown]
  - Vaccination site pain [Unknown]
  - Feeling abnormal [Unknown]
  - Temperature intolerance [Unknown]
  - Heart rate increased [Unknown]
